FAERS Safety Report 17165995 (Version 1)
Quarter: 2019Q4

REPORT INFORMATION
  Report Type: Spontaneous
  Country: US (occurrence: US)
  Receive Date: 20191217
  Receipt Date: 20191217
  Transmission Date: 20200122
  Serious: Yes (Hospitalization, Other)
  Sender: FDA-Public Use
  Company Number: US-ELI_LILLY_AND_COMPANY-US201912003311

PATIENT
  Sex: Female

DRUGS (8)
  1. LITHIUM. [Suspect]
     Active Substance: LITHIUM
     Indication: PSYCHOTIC DISORDER
     Dosage: UNK, UNKNOWN
     Route: 065
  2. CYCLOBENZAPRINE. [Suspect]
     Active Substance: CYCLOBENZAPRINE
     Indication: MOBILITY DECREASED
     Dosage: UNK, UNKNOWN
     Route: 065
  3. TIZANIDINE. [Concomitant]
     Active Substance: TIZANIDINE
     Indication: MOBILITY DECREASED
  4. ABILIFY [Concomitant]
     Active Substance: ARIPIPRAZOLE
     Indication: PSYCHOTIC DISORDER
  5. XANAX [Concomitant]
     Active Substance: ALPRAZOLAM
     Indication: ANXIETY
  6. LATUDA [Concomitant]
     Active Substance: LURASIDONE HYDROCHLORIDE
     Indication: PSYCHOTIC DISORDER
  7. PROZAC [Suspect]
     Active Substance: FLUOXETINE HYDROCHLORIDE
     Indication: PERINATAL DEPRESSION
     Dosage: UNK, UNKNOWN
     Route: 065
     Dates: start: 2010
  8. RISPERIDONE. [Concomitant]
     Active Substance: RISPERIDONE
     Indication: PSYCHOTIC DISORDER

REACTIONS (14)
  - Anxiety [Unknown]
  - Malnutrition [Unknown]
  - Dehydration [Unknown]
  - Feeling abnormal [Unknown]
  - Paralysis [Unknown]
  - Amnesia [Unknown]
  - Thirst decreased [Unknown]
  - Mobility decreased [Unknown]
  - Brain injury [Unknown]
  - Eating disorder [Unknown]
  - Mental disorder [Unknown]
  - Schizoaffective disorder [Unknown]
  - Mental impairment [Unknown]
  - Muscle rigidity [Unknown]

NARRATIVE: CASE EVENT DATE: 2010
